FAERS Safety Report 24085567 (Version 1)
Quarter: 2024Q3

REPORT INFORMATION
  Report Type: Spontaneous
  Country: US (occurrence: None)
  Receive Date: 20240712
  Receipt Date: 20240712
  Transmission Date: 20241016
  Serious: No
  Sender: Public
  Company Number: None

PATIENT
  Age: 60 Year
  Sex: Female

DRUGS (2)
  1. AMBRISENTAN [Suspect]
     Active Substance: AMBRISENTAN
     Indication: Pulmonary arterial hypertension
     Dosage: 5 MG DAILY ORAL
     Route: 048
  2. TADALAFIL [Suspect]
     Active Substance: TADALAFIL

REACTIONS (2)
  - Abdominal pain upper [None]
  - Abdominal discomfort [None]

NARRATIVE: CASE EVENT DATE: 20240712
